FAERS Safety Report 21882130 (Version 1)
Quarter: 2023Q1

REPORT INFORMATION
  Report Type: Spontaneous
  Country: US (occurrence: US)
  Receive Date: 20230119
  Receipt Date: 20230119
  Transmission Date: 20230418
  Serious: Yes (Hospitalization)
  Sender: FDA-Public Use
  Company Number: US-Melinta Therapeutics, LLC-US-MLNT-23-00029

PATIENT
  Sex: Female

DRUGS (1)
  1. ORBACTIV [Suspect]
     Active Substance: ORITAVANCIN
     Indication: Infection
     Dosage: PATIENT DID NOT GET FULL DOSE, ONLY GOT PART OF THE DOSE.
     Route: 041

REACTIONS (3)
  - Respiratory disorder [Unknown]
  - Drug hypersensitivity [Unknown]
  - Rash [Unknown]
